FAERS Safety Report 21021043 (Version 3)
Quarter: 2022Q4

REPORT INFORMATION
  Report Type: Spontaneous
  Country: US (occurrence: None)
  Receive Date: 20220629
  Receipt Date: 20221125
  Transmission Date: 20230113
  Serious: No
  Sender: FDA-Public Use
  Company Number: 2022A223487

PATIENT
  Age: 74 Year
  Sex: Female
  Weight: 73.9 kg

DRUGS (3)
  1. BYDUREON BCISE [Suspect]
     Active Substance: EXENATIDE
     Route: 065
  2. BYDUREON [Suspect]
     Active Substance: EXENATIDE
     Route: 065
  3. BYETTA [Suspect]
     Active Substance: EXENATIDE
     Route: 065

REACTIONS (5)
  - Visual impairment [Unknown]
  - Agitation [Unknown]
  - Device delivery system issue [Unknown]
  - Device leakage [Unknown]
  - Wrong technique in device usage process [Unknown]

NARRATIVE: CASE EVENT DATE: 20220101
